FAERS Safety Report 10364508 (Version 1)
Quarter: 2014Q3

REPORT INFORMATION
  Report Type: Spontaneous
  Country: US (occurrence: US)
  Receive Date: 20140806
  Receipt Date: 20140806
  Transmission Date: 20150326
  Serious: Yes (Other)
  Sender: FDA-Public Use
  Company Number: US-AMGEN-USASP2014058180

PATIENT
  Sex: Male
  Weight: 90.7 kg

DRUGS (1)
  1. PROLIA [Suspect]
     Active Substance: DENOSUMAB
     Indication: OSTEOPOROSIS
     Route: 065

REACTIONS (11)
  - Hypertension [Unknown]
  - Hyperthyroidism [Unknown]
  - Back pain [Unknown]
  - Vitamin D deficiency [Unknown]
  - Groin pain [Unknown]
  - Asthenia [Unknown]
  - Rheumatoid arthritis [Unknown]
  - Type 1 diabetes mellitus [Unknown]
  - Chronic obstructive pulmonary disease [Unknown]
  - Activities of daily living impaired [Unknown]
  - Inadequate diet [Unknown]
